FAERS Safety Report 17695286 (Version 7)
Quarter: 2020Q3

REPORT INFORMATION
  Report Type: Report from Study
  Country: US (occurrence: US)
  Receive Date: 20200422
  Receipt Date: 20200910
  Transmission Date: 20201102
  Serious: Yes (Hospitalization, Other)
  Sender: FDA-Public Use
  Company Number: US-GILEAD-2020-0460467

PATIENT
  Age: 53 Year
  Sex: Female

DRUGS (4)
  1. REMODULIN [Suspect]
     Active Substance: TREPROSTINIL
     Indication: PULMONARY ARTERIAL HYPERTENSION
     Dosage: UNK
     Route: 041
     Dates: start: 20190619
  2. ADCIRCA [Concomitant]
     Active Substance: TADALAFIL
  3. AMBRISENTAN [Suspect]
     Active Substance: AMBRISENTAN
     Indication: PULMONARY ARTERIAL HYPERTENSION
     Dosage: 10 MG, QD
     Route: 065
     Dates: start: 20190618
  4. REMODULIN [Suspect]
     Active Substance: TREPROSTINIL
     Dosage: 0.04 UG/KG, Q1MINUTE
     Route: 041

REACTIONS (6)
  - Erythema [Unknown]
  - Infusion site infection [Unknown]
  - Infusion site rash [Unknown]
  - Suspected COVID-19 [Unknown]
  - Pyrexia [Unknown]
  - Cardiomegaly [Not Recovered/Not Resolved]

NARRATIVE: CASE EVENT DATE: 20200809
